FAERS Safety Report 7743679-9 (Version None)
Quarter: 2011Q3

REPORT INFORMATION
  Report Type: 
  Country: None (occurrence: None)
  Receive Date: 20110912
  Receipt Date: 20110902
  Transmission Date: 20111222
  Serious: Yes (Other)
  Sender: FDA-Public Use
  Company Number: JP-MILLENNIUM PHARMACEUTICALS, INC.-2011-02282

PATIENT

DRUGS (2)
  1. ACYCLOVIR [Concomitant]
     Indication: ANTIVIRAL PROPHYLAXIS
     Dosage: 200 MG, QD
  2. VELCADE [Suspect]
     Indication: MULTIPLE MYELOMA
     Dosage: UNK
     Route: 042

REACTIONS (4)
  - PSEUDOMEMBRANOUS COLITIS [None]
  - HERPES ZOSTER [None]
  - ASPERGILLOSIS [None]
  - CLOSTRIDIUM DIFFICILE COLITIS [None]
